FAERS Safety Report 6620929-3 (Version None)
Quarter: 2010Q1

REPORT INFORMATION
  Report Type: 
  Country: None (occurrence: None)
  Receive Date: 20100308
  Receipt Date: 20100308
  Transmission Date: 20100710
  Serious: Yes (Other)
  Sender: FDA-Public Use
  Company Number: None

PATIENT
  Sex: Female
  Weight: 81.6475 kg

DRUGS (1)
  1. TRI-LUMA [Suspect]
     Indication: SKIN DISCOLOURATION
     Dosage: 1XHS TOP (4 NIGHTS)
     Route: 061
     Dates: start: 20100301, end: 20100304

REACTIONS (1)
  - APPLICATION SITE DISCOLOURATION [None]
